FAERS Safety Report 9753805 (Version 1)
Quarter: 2013Q4

REPORT INFORMATION
  Report Type: Spontaneous
  Country: US (occurrence: US)
  Receive Date: 20131213
  Receipt Date: 20131213
  Transmission Date: 20140711
  Serious: No
  Sender: FDA-Public Use
  Company Number: US-GILEAD-2010-0027104

PATIENT
  Sex: Female
  Weight: 106.59 kg

DRUGS (18)
  1. LETAIRIS [Suspect]
     Indication: PULMONARY ARTERIAL HYPERTENSION
     Route: 048
     Dates: start: 20091211
  2. TRILIPIX DR [Concomitant]
  3. VITAMIN D 400 [Concomitant]
  4. LOVASTATIN [Concomitant]
  5. AMOXICILLIN [Concomitant]
  6. JANUVIA [Concomitant]
  7. FUROSEMIDE [Concomitant]
  8. POTASSIUM CHLORIDE [Concomitant]
  9. LIPITOR [Concomitant]
  10. GLIPIZIDE [Concomitant]
  11. TETRACYCLIN [Concomitant]
  12. IBUPROFEN [Concomitant]
  13. ASA LO-DOSE [Concomitant]
  14. MULTIVITAMIN [Concomitant]
  15. FISH OIL [Concomitant]
  16. METFORMIN [Concomitant]
  17. LOPID [Concomitant]
  18. LISINOPRIL [Concomitant]

REACTIONS (1)
  - Red blood cell count decreased [Unknown]
